FAERS Safety Report 5119918-X (Version None)
Quarter: 2006Q3

REPORT INFORMATION
  Report Type: 
  Country: None (occurrence: None)
  Receive Date: 20060927
  Receipt Date: 20060926
  Transmission Date: 20061208
  Serious: Yes (Hospitalization)
  Sender: FDA-Public Use
  Company Number: HQWYE866319SEP06

PATIENT
  Age: 62 Year
  Sex: Male

DRUGS (11)
  1. CEFIXIME CHEWABLE [Suspect]
     Indication: URINARY TRACT INFECTION
     Dosage: 200MG DAILY
     Route: 048
     Dates: start: 20060724, end: 20060810
  2. IMMUNE GLOBULIN INTRAVENOUS (HUMAN) [Concomitant]
  3. PREDNISONE TAB [Concomitant]
  4. LIORESAL [Concomitant]
  5. GENTAMICIN SULFATE [Concomitant]
  6. CIPROFLOXACIN HCL [Suspect]
     Indication: URINARY TRACT INFECTION
     Dosage: 250 MG DAILY
     Route: 048
     Dates: start: 20060721, end: 20060724
  7. AMOXICILLIN TRIHYDRATE [Suspect]
     Indication: URINARY TRACT INFECTION
     Dosage: 1G DAILY
     Route: 048
     Dates: start: 20060725, end: 20060810
  8. ACETAMINOPHEN W/ PROPOXYPHENE HCL [Suspect]
     Route: 048
     Dates: start: 20060723, end: 20060731
  9. DEXTROSE (GLUCOSE INJECTION) [Concomitant]
  10. ORELOX (CEFPOSOXIME PROXETIL) [Concomitant]
  11. GLUCOSE W/ELECTROLYTES (ELECTROLYTES NOS/GLUCOSE) [Concomitant]

REACTIONS (3)
  - CONDITION AGGRAVATED [None]
  - THROMBOCYTOPENIA [None]
  - THROMBOCYTOPENIC PURPURA [None]
